FAERS Safety Report 4853173-0 (Version None)
Quarter: 2005Q4

REPORT INFORMATION
  Report Type: 
  Country: None (occurrence: None)
  Receive Date: 20051214
  Receipt Date: 20051130
  Transmission Date: 20060501
  Serious: Yes (Other)
  Sender: FDA-Public Use
  Company Number: US-ROCHE-427209

PATIENT
  Age: 20 Year
  Sex: Male

DRUGS (2)
  1. ACCUTANE [Suspect]
     Indication: DRUG USE FOR UNKNOWN INDICATION
     Route: 065
     Dates: start: 20030215, end: 20030515
  2. ACCUTANE [Suspect]
     Route: 065
     Dates: start: 20011115, end: 20020415

REACTIONS (8)
  - DEPRESSION [None]
  - EMOTIONAL DISORDER [None]
  - INJURY [None]
  - INTESTINAL HAEMORRHAGE [None]
  - IRRITABLE BOWEL SYNDROME [None]
  - MENTAL DISORDER [None]
  - RECTAL HAEMORRHAGE [None]
  - SUICIDAL IDEATION [None]
